FAERS Safety Report 8417313 (Version 3)
Quarter: 2012Q4

REPORT INFORMATION
  Report Type: 
  Country: US (occurrence: US)
  Receive Date: 20120220
  Receipt Date: 20120906
  Transmission Date: 20130627
  Serious: Yes (Death)
  Sender: FDA-Public Use
  Company Number: US-ROCHE-1040708

PATIENT
  Sex: Female
  Weight: 60.84 kg

DRUGS (3)
  1. AVASTIN [Suspect]
     Indication: NON-SMALL CELL LUNG CANCER
     Route: 065
  2. TARCEVA [Suspect]
     Indication: LUNG NEOPLASM MALIGNANT
     Route: 065
  3. ERBITUX [Concomitant]
     Indication: NON-SMALL CELL LUNG CANCER
     Route: 065

REACTIONS (2)
  - Disease progression [Fatal]
  - Stomatitis [Unknown]
